FAERS Safety Report 17215845 (Version 1)
Quarter: 2019Q4

REPORT INFORMATION
  Report Type: Spontaneous
  Country: DE (occurrence: DE)
  Receive Date: 20191230
  Receipt Date: 20191230
  Transmission Date: 20200122
  Serious: Yes (Other)
  Sender: FDA-Public Use
  Company Number: DE-ASCEND THERAPEUTICS US, LLC-2077912

PATIENT
  Age: 55 Year
  Sex: Female

DRUGS (1)
  1. ESTROGEL [Suspect]
     Active Substance: ESTRADIOL
     Indication: PSYCHOTIC DISORDER
     Dates: end: 201903

REACTIONS (7)
  - Diarrhoea [Not Recovered/Not Resolved]
  - Nausea [Not Recovered/Not Resolved]
  - Carbohydrate tolerance decreased [Unknown]
  - Pancreatic failure [Unknown]
  - Product use in unapproved indication [None]
  - Off label use [Unknown]
  - Abdominal pain upper [Not Recovered/Not Resolved]
